FAERS Safety Report 15555807 (Version 1)
Quarter: 2018Q4

REPORT INFORMATION
  Report Type: Spontaneous
  Country: US (occurrence: US)
  Receive Date: 20181023
  Receipt Date: 20181023
  Transmission Date: 20190205
  Serious: No
  Sender: FDA-Public Use
  Company Number: None

PATIENT
  Age: 46 Year
  Sex: Female

DRUGS (1)
  1. SAMSCA [Suspect]
     Active Substance: TOLVAPTAN
     Dosage: OCT-2018- OCT-2019
     Route: 048
     Dates: start: 201810

REACTIONS (1)
  - Off label use [None]

NARRATIVE: CASE EVENT DATE: 20181022
